FAERS Safety Report 8091198-5 (Version None)
Quarter: 2012Q1

REPORT INFORMATION
  Report Type: 
  Country: None (occurrence: None)
  Receive Date: 20120129
  Receipt Date: 20110929
  Transmission Date: 20120608
  Serious: No
  Sender: FDA-Public Use
  Company Number: US-ABBOTT-11P-163-0859282-00

PATIENT
  Age: 46 Year
  Sex: Male

DRUGS (6)
  1. HUMIRA [Suspect]
     Indication: PSORIATIC ARTHROPATHY
     Dosage: INITIAL DOSE
     Dates: start: 20110929
  2. UNKNOWN FUNGAL MEDICATION [Concomitant]
     Indication: FUNGAL INFECTION
  3. FOLIC ACID [Concomitant]
     Indication: VITAMIN SUPPLEMENTATION
  4. UNKNOWN FUNGAL MEDICATION [Concomitant]
  5. METHOTREXATE [Concomitant]
     Indication: PSORIATIC ARTHROPATHY
  6. MORPHINE [Concomitant]
     Indication: BACK PAIN
     Dosage: 1 EVERY 12 HOURS, PRN

REACTIONS (1)
  - DIZZINESS [None]
